FAERS Safety Report 6886122-4 (Version None)
Quarter: 2010Q3

REPORT INFORMATION
  Report Type: 
  Country: None (occurrence: None)
  Receive Date: 20100729
  Receipt Date: 20080422
  Transmission Date: 20110219
  Serious: Yes (Other)
  Sender: FDA-Public Use
  Company Number: US-PFIZER INC-2008035210

PATIENT
  Sex: Female
  Weight: 73 kg

DRUGS (4)
  1. CELEBREX [Suspect]
     Indication: OSTEOARTHRITIS
     Dates: start: 20080408, end: 20080421
  2. ACIPHEX [Concomitant]
  3. ULTRAM [Concomitant]
  4. CLIMARA [Concomitant]

REACTIONS (1)
  - URTICARIA [None]
